FAERS Safety Report 11180897 (Version 1)
Quarter: 2015Q2

REPORT INFORMATION
  Report Type: Spontaneous
  Country: US (occurrence: US)
  Receive Date: 20150611
  Receipt Date: 20150611
  Transmission Date: 20150821
  Serious: Yes (Other)
  Sender: FDA-Public Use
  Company Number: US-ASTRAZENECA-2015SE55144

PATIENT
  Age: 19095 Day
  Sex: Female

DRUGS (4)
  1. INSULN N [Concomitant]
     Indication: TYPE 2 DIABETES MELLITUS
     Dosage: 18 UNIT DAILY
     Route: 065
  2. BYETTA [Suspect]
     Active Substance: EXENATIDE
     Indication: TYPE 2 DIABETES MELLITUS
     Route: 058
  3. BYETTA [Suspect]
     Active Substance: EXENATIDE
     Indication: TYPE 2 DIABETES MELLITUS
     Route: 058
  4. INSULN N [Concomitant]
     Indication: TYPE 2 DIABETES MELLITUS
     Dosage: 5 UNIT DAILY
     Route: 065

REACTIONS (4)
  - Urinary retention [Unknown]
  - Diabetes mellitus inadequate control [Unknown]
  - Cystitis [Unknown]
  - Intentional product misuse [Unknown]

NARRATIVE: CASE EVENT DATE: 20150602
